FAERS Safety Report 14607524 (Version 3)
Quarter: 2018Q3

REPORT INFORMATION
  Report Type: Spontaneous
  Country: ES (occurrence: ES)
  Receive Date: 20180307
  Receipt Date: 20180709
  Transmission Date: 20181010
  Serious: Yes (Death, Other)
  Sender: FDA-Public Use
  Company Number: ES-JNJFOC-20180300298

PATIENT
  Age: 71 Year
  Sex: Male

DRUGS (2)
  1. STELARA [Suspect]
     Active Substance: USTEKINUMAB
     Indication: CROHN^S DISEASE
     Dosage: FIRST SUBCUTANEOUS DOSE
     Route: 058
     Dates: start: 20180206
  2. STELARA [Suspect]
     Active Substance: USTEKINUMAB
     Indication: CROHN^S DISEASE
     Dosage: INDUCTION DOSE (INTRAVENOUS), STELARA 130 MG CONCENTRATED FOR SOLUTION FOR PERFUSION, 1 VIAL
     Route: 058
     Dates: start: 20171212

REACTIONS (3)
  - Cardiac failure [Fatal]
  - Cardio-respiratory arrest [Fatal]
  - Anaemia [Fatal]

NARRATIVE: CASE EVENT DATE: 20180221
